FAERS Safety Report 4896772-2 (Version None)
Quarter: 2006Q1

REPORT INFORMATION
  Report Type: 
  Country: None (occurrence: None)
  Receive Date: 20060131
  Receipt Date: 20060123
  Transmission Date: 20060701
  Serious: Yes (Hospitalization)
  Sender: FDA-Public Use
  Company Number: PHBS2006ES01219

PATIENT
  Age: 86 Year
  Sex: Male

DRUGS (9)
  1. LUDIOMIL [Suspect]
     Route: 048
  2. TERMALGIN [Concomitant]
     Route: 065
  3. OMEPRAZOLE [Concomitant]
     Route: 065
  4. NOLOTIL [Concomitant]
     Route: 065
  5. HALOPERIDOL [Suspect]
     Dosage: 2.5 MG, ONCE/SINGLE
     Route: 058
     Dates: start: 20051012, end: 20051012
  6. TIAPRIZAL [Suspect]
     Dosage: 200 MG/D
     Route: 048
     Dates: start: 20051011
  7. LORAZEPAM [Suspect]
     Route: 048
  8. SINEMET [Suspect]
     Route: 048
  9. SOGILEN [Suspect]
     Route: 048

REACTIONS (3)
  - CEREBROVASCULAR ACCIDENT [None]
  - DRUG INTERACTION [None]
  - TREMOR [None]
